FAERS Safety Report 6332480-9 (Version None)
Quarter: 2009Q3

REPORT INFORMATION
  Report Type: 
  Country: None (occurrence: None)
  Receive Date: 20090820
  Receipt Date: 20090811
  Transmission Date: 20100115
  Serious: Yes (Hospitalization, Other)
  Sender: FDA-Public Use
  Company Number: 237647K09USA

PATIENT
  Age: 50 Year
  Sex: Female
  Weight: 63 kg

DRUGS (1)
  1. REBIF [Suspect]
     Indication: MULTIPLE SCLEROSIS
     Dosage: 44 MCG, 3 IN 1 WEEKS
     Dates: start: 20030501, end: 20090401

REACTIONS (8)
  - ANAL FISTULA [None]
  - DISEASE PROGRESSION [None]
  - DISEASE RECURRENCE [None]
  - DYSPNOEA [None]
  - MULTIPLE SCLEROSIS [None]
  - PAIN [None]
  - PERIRECTAL ABSCESS [None]
  - RECTAL HAEMORRHAGE [None]
